FAERS Safety Report 8960981 (Version 1)
Quarter: 2012Q4

REPORT INFORMATION
  Report Type: 
  Country: IT (occurrence: IT)
  Receive Date: 20121212
  Receipt Date: 20121212
  Transmission Date: 20130627
  Serious: Yes (Hospitalization)
  Sender: FDA-Public Use
  Company Number: IT-ARROW-2012-21783

PATIENT
  Age: 49 Year
  Sex: Female

DRUGS (4)
  1. LAMOTRIGINE (UNKNOWN) [Suspect]
     Indication: INTENTIONAL OVERDOSE
     Dosage: Daily dose unknown - overdose with unknown amount of 100mg tablets as drug abuse
     Route: 048
     Dates: start: 20121125, end: 20121125
  2. LORAZEPAM [Suspect]
     Indication: INTENTIONAL OVERDOSE
     Dosage: Daily dose unknown - overdose with 150mg total as drug abuse
     Route: 048
     Dates: start: 20121125, end: 20121125
  3. SUPRADYN                           /00453001/ [Concomitant]
     Indication: PRODUCT USED FOR UNKNOWN INDICATION
     Dosage: UNK, unknown
  4. EN [Concomitant]
     Indication: PRODUCT USED FOR UNKNOWN INDICATION
     Dosage: UNK, unknown
     Route: 065

REACTIONS (7)
  - Syncope [Recovering/Resolving]
  - Hypotension [Recovering/Resolving]
  - Periorbital haemorrhage [Recovering/Resolving]
  - Eyelid oedema [Recovering/Resolving]
  - Intentional overdose [Recovering/Resolving]
  - Overdose [Recovering/Resolving]
  - Intentional drug misuse [Unknown]
